FAERS Safety Report 5915511-7 (Version None)
Quarter: 2008Q4

REPORT INFORMATION
  Report Type: 
  Country: None (occurrence: None)
  Receive Date: 20081010
  Receipt Date: 20080930
  Transmission Date: 20090506
  Serious: Yes (Other)
  Sender: FDA-Public Use
  Company Number: JP-PFIZER INC-2008012424

PATIENT
  Sex: Male
  Weight: 70 kg

DRUGS (15)
  1. ZYVOX [Suspect]
     Indication: STAPHYLOCOCCAL INFECTION
     Dosage: DAILY DOSE:1200MG
     Route: 048
     Dates: start: 20071217
  2. AMLODIPINE [Concomitant]
  3. LAFUTIDINE [Concomitant]
  4. FERROMIA [Concomitant]
     Dates: start: 20071217, end: 20080120
  5. MINOCYCLINE HCL [Concomitant]
     Dates: start: 20071217, end: 20080101
  6. EURODIN [Concomitant]
     Dates: start: 20071219
  7. ALL OTHER THERAPEUTIC PRODUCTS [Concomitant]
     Dates: start: 20071219
  8. AVELOX [Concomitant]
     Dates: start: 20071226
  9. FLAVOXATE HCL [Concomitant]
     Dates: start: 20071121
  10. LEPETAN [Concomitant]
     Dates: start: 20071221
  11. FESIN [Concomitant]
  12. GLYCYRRHIZIC ACID [Concomitant]
     Dates: start: 20080120, end: 20080121
  13. VENOGLOBULIN [Concomitant]
     Dates: start: 20080120, end: 20080121
  14. LIMAPROST [Concomitant]
     Route: 048
  15. VONAFEC [Concomitant]
     Route: 054

REACTIONS (4)
  - DECREASED APPETITE [None]
  - DEMENTIA [None]
  - GLOSSITIS [None]
  - PANCYTOPENIA [None]
